FAERS Safety Report 8575712-9 (Version None)
Quarter: 2012Q3

REPORT INFORMATION
  Report Type: 
  Country: None (occurrence: None)
  Receive Date: 20120807
  Receipt Date: 20120803
  Transmission Date: 20120928
  Serious: Yes (Hospitalization)
  Sender: FDA-Public Use
  Company Number: PHHO2012NL010219

PATIENT
  Sex: Male

DRUGS (4)
  1. PREDNISONE TAB [Suspect]
     Indication: RENAL TRANSPLANT
     Dosage: 10 MG, UNK
     Dates: start: 20110714, end: 20120709
  2. PROGRAF [Suspect]
     Indication: RENAL TRANSPLANT
     Dosage: 3 MG, BID
     Dates: start: 20110714, end: 20120709
  3. TOLBUTAMIDE [Concomitant]
     Indication: HYPERGLYCAEMIA
     Dosage: 500 MG, QD
     Dates: start: 20120704, end: 20120708
  4. MYFORTIC [Suspect]
     Indication: RENAL TRANSPLANT
     Dosage: 360 MG, BID
     Dates: start: 20110714, end: 20120301

REACTIONS (2)
  - MALAISE [None]
  - TYPE 2 DIABETES MELLITUS [None]
